FAERS Safety Report 23531798 (Version 2)
Quarter: 2024Q1

REPORT INFORMATION
  Report Type: Spontaneous
  Country: US (occurrence: US)
  Receive Date: 20240216
  Receipt Date: 20240314
  Transmission Date: 20240409
  Serious: No
  Sender: FDA-Public Use
  Company Number: US-BAYER-2024A025254

PATIENT

DRUGS (1)
  1. LOTRIMIN ULTRA JOCK ITCH [Suspect]
     Active Substance: BUTENAFINE HYDROCHLORIDE
     Indication: Tinea cruris
     Route: 061

REACTIONS (2)
  - Drug ineffective [Unknown]
  - Product packaging issue [None]
